FAERS Safety Report 10643786 (Version 1)
Quarter: 2014Q4

REPORT INFORMATION
  Report Type: Spontaneous
  Country: US (occurrence: US)
  Receive Date: 20141210
  Receipt Date: 20141210
  Transmission Date: 20150529
  Serious: Yes (Hospitalization, Other)
  Sender: FDA-Public Use
  Company Number: US-BAYER-2014-180298

PATIENT
  Age: 78 Year
  Sex: Female

DRUGS (1)
  1. ACETYLSALICYLIC ACID({=100 MG) [Suspect]
     Active Substance: ASPIRIN
     Dosage: DAILY DOSE 1 DF

REACTIONS (4)
  - Mental status changes [Recovered/Resolved]
  - Haemoglobin decreased [None]
  - Ecchymosis [Recovering/Resolving]
  - Subcutaneous haematoma [Recovering/Resolving]
